FAERS Safety Report 8094715-4 (Version None)
Quarter: 2012Q1

REPORT INFORMATION
  Report Type: 
  Country: None (occurrence: None)
  Receive Date: 20120129
  Receipt Date: 20111220
  Transmission Date: 20120608
  Serious: No
  Sender: FDA-Public Use
  Company Number: US-ABBOTT-11P-163-0885317-00

PATIENT
  Age: 52 Year
  Sex: Female

DRUGS (20)
  1. BIOTIN [Concomitant]
     Indication: DRY MOUTH
  2. HUMIRA [Suspect]
     Route: 058
     Dates: start: 20111215
  3. OMEPRAZOLE [Concomitant]
     Indication: GASTROOESOPHAGEAL REFLUX DISEASE
  4. LEXAPRO [Concomitant]
     Indication: DEPRESSION
  5. OXYCONTIN [Concomitant]
     Indication: PRODUCT USED FOR UNKNOWN INDICATION
  6. ARTHROTEC [Concomitant]
     Indication: PRODUCT USED FOR UNKNOWN INDICATION
  7. COMBIVENT [Concomitant]
     Indication: PRODUCT USED FOR UNKNOWN INDICATION
  8. CRESTOR [Concomitant]
     Indication: BLOOD CHOLESTEROL INCREASED
  9. VALIUM [Concomitant]
     Indication: PRODUCT USED FOR UNKNOWN INDICATION
  10. NAMENDA [Suspect]
     Indication: AMNESIA
  11. HUMIRA [Suspect]
     Indication: RHEUMATOID ARTHRITIS
     Route: 058
     Dates: start: 20110901, end: 20110901
  12. LAMICTAL [Concomitant]
     Indication: PRODUCT USED FOR UNKNOWN INDICATION
  13. CELEBREX [Concomitant]
     Indication: PRODUCT USED FOR UNKNOWN INDICATION
  14. NUMOISYN [Concomitant]
     Indication: DRY MOUTH
  15. METFORMIN HCL [Concomitant]
     Indication: DIABETES MELLITUS
  16. MOTRIN [Concomitant]
     Indication: PRODUCT USED FOR UNKNOWN INDICATION
     Dosage: TAKEN AT DIFFERENT TIMES PRN
  17. KLONOPIN [Concomitant]
     Indication: PAIN
  18. COMPAZINE [Concomitant]
     Indication: NAUSEA
  19. HYDROCODONE BITARTRATE [Concomitant]
     Indication: ARTHRALGIA
  20. TRAZODONE HCL [Concomitant]
     Indication: INSOMNIA

REACTIONS (3)
  - DRUG INEFFECTIVE [None]
  - OEDEMA PERIPHERAL [None]
  - INJECTION SITE PAIN [None]
